FAERS Safety Report 9935242 (Version 2)
Quarter: 2014Q1

REPORT INFORMATION
  Report Type: Report from Study
  Country: NL (occurrence: NL)
  Receive Date: 20140228
  Receipt Date: 20140326
  Transmission Date: 20141002
  Serious: Yes (Hospitalization)
  Sender: FDA-Public Use
  Company Number: PHHY2014NL024576

PATIENT
  Age: 72 Year
  Sex: Male

DRUGS (7)
  1. ZOMETA [Suspect]
     Indication: PROSTATE CANCER
     Dosage: 4 MG PER 100 ML ONCE EVERY 3 WEEKS
     Route: 042
  2. ZOMETA [Suspect]
     Indication: METASTASES TO BONE
     Dosage: 4 MG PER 100 ML ONCE EVERY 3 WEEKS
     Route: 042
     Dates: start: 20121228
  3. ZOMETA [Suspect]
     Dosage: 4 MG, ONCE PER 4 WEEKS
     Route: 042
     Dates: start: 201306
  4. ZOMETA [Suspect]
     Dosage: 4 MG PER 100 ML ONCE EVERY 3 WEEKS
     Route: 042
     Dates: start: 20140213
  5. ZOMETA [Suspect]
     Dosage: 4 MG PER 100 ML ONCE EVERY 3 WEEKS
     Route: 042
     Dates: start: 20140226
  6. TAXOTERE [Concomitant]
     Indication: CHEMOTHERAPY
     Dosage: ONCE PER 3 WEEKS
     Route: 042
  7. NEULASTA [Concomitant]
     Dosage: ONCE PER 3 WEEKS
     Route: 030

REACTIONS (1)
  - Intestinal obstruction [Recovered/Resolved]
